FAERS Safety Report 12277497 (Version 1)
Quarter: 2016Q2

REPORT INFORMATION
  Report Type: Spontaneous
  Country: HK (occurrence: HK)
  Receive Date: 20160418
  Receipt Date: 20160418
  Transmission Date: 20160815
  Serious: Yes (Other)
  Sender: FDA-Public Use
  Company Number: HK-ACTAVIS-2016-07730

PATIENT
  Age: 89 Year
  Sex: Male

DRUGS (14)
  1. AMLODIPINE [Concomitant]
     Active Substance: AMLODIPINE BESYLATE
     Indication: PRODUCT USED FOR UNKNOWN INDICATION
     Dosage: UNK
     Route: 065
  2. THEOPHYLLINE [Concomitant]
     Active Substance: THEOPHYLLINE ANHYDROUS
     Indication: PRODUCT USED FOR UNKNOWN INDICATION
     Dosage: UNK
     Route: 065
  3. ROCURONIUM [Concomitant]
     Active Substance: ROCURONIUM BROMIDE
     Indication: ENDOTRACHEAL INTUBATION
     Dosage: UNK
     Route: 065
  4. ATROPINE. [Concomitant]
     Active Substance: ATROPINE
     Dosage: 8.4 MG, TOTAL ADMINISTERED IN AN INCREMENTAL MANNER
     Route: 065
  5. ATROPINE. [Concomitant]
     Active Substance: ATROPINE
     Dosage: INFUSION AT 1-5 MG/MIN
     Route: 051
  6. PRALIDOXIME [Concomitant]
     Indication: PRODUCT USED FOR UNKNOWN INDICATION
     Dosage: 8-10 MG/KG/MIN
     Route: 051
  7. MORPHINE (UNKNOWN) [Suspect]
     Active Substance: MORPHINE
     Indication: SEDATION
     Dosage: LOW DOSE
     Route: 065
  8. ATROPINE. [Concomitant]
     Active Substance: ATROPINE
     Indication: PRODUCT USED FOR UNKNOWN INDICATION
     Dosage: 1.2 MG, UNKNOWN
     Route: 065
  9. MIDAZOLAM [Suspect]
     Active Substance: MIDAZOLAM\MIDAZOLAM HYDROCHLORIDE
     Indication: SEDATION
     Dosage: LOW DOSE
     Route: 051
  10. SALBUTAMOL [Concomitant]
     Active Substance: ALBUTEROL
     Indication: PRODUCT USED FOR UNKNOWN INDICATION
     Dosage: UNK
     Route: 065
  11. FLUTICASONE W/SALMETEROL [Concomitant]
     Active Substance: FLUTICASONE PROPIONATE\SALMETEROL XINAFOATE
     Indication: PRODUCT USED FOR UNKNOWN INDICATION
     Dosage: UNK
     Route: 055
  12. ETOMIDATE. [Concomitant]
     Active Substance: ETOMIDATE
     Indication: ENDOTRACHEAL INTUBATION
     Dosage: UNK
     Route: 065
  13. CHARCOAL ACTIVATED [Concomitant]
     Active Substance: ACTIVATED CHARCOAL
     Indication: PRODUCT USED FOR UNKNOWN INDICATION
     Dosage: SINGLE DOSE
     Route: 065
  14. ADRENALINE                         /00003901/ [Concomitant]
     Active Substance: EPINEPHRINE
     Indication: PRODUCT USED FOR UNKNOWN INDICATION
     Dosage: 10 MCG/MIN
     Route: 051

REACTIONS (2)
  - Delirium [Unknown]
  - Mental disorder [Unknown]
